FAERS Safety Report 5187803-3 (Version None)
Quarter: 2006Q4

REPORT INFORMATION
  Report Type: 
  Country: None (occurrence: None)
  Receive Date: 20061212
  Receipt Date: 20061127
  Transmission Date: 20070319
  Serious: Yes (Hospitalization)
  Sender: FDA-Public Use
  Company Number: D-06-0061

PATIENT
  Sex: Male

DRUGS (1)
  1. JANTOVEN [Suspect]
     Dosage: PO
     Route: 048
     Dates: end: 20061101

REACTIONS (4)
  - BLOOD DISORDER [None]
  - DRUG INEFFECTIVE [None]
  - INTERNATIONAL NORMALISED RATIO ABNORMAL [None]
  - PROTHROMBIN TIME ABNORMAL [None]
